FAERS Safety Report 24625893 (Version 3)
Quarter: 2024Q4

REPORT INFORMATION
  Report Type: Spontaneous
  Country: US (occurrence: US)
  Receive Date: 20241115
  Receipt Date: 20241218
  Transmission Date: 20250114
  Serious: No
  Sender: PFIZER
  Company Number: US-PFIZER INC-202400299330

PATIENT
  Age: 20 Year
  Sex: Female
  Weight: 69.4 kg

DRUGS (2)
  1. VELSIPITY [Suspect]
     Active Substance: ETRASIMOD ARGININE
     Indication: Enteritis
     Dosage: 2 MG, 1X/DAY
     Route: 048
     Dates: start: 20241119
  2. VELSIPITY [Suspect]
     Active Substance: ETRASIMOD ARGININE
     Indication: Colitis

REACTIONS (6)
  - Fatigue [Unknown]
  - Nausea [Unknown]
  - Poor quality sleep [Unknown]
  - Decreased appetite [Unknown]
  - Weight decreased [Unknown]
  - Condition aggravated [Unknown]
